FAERS Safety Report 9912525 (Version 1)
Quarter: 2014Q1

REPORT INFORMATION
  Report Type: Spontaneous
  Country: SK (occurrence: SK)
  Receive Date: 20140220
  Receipt Date: 20140220
  Transmission Date: 20141002
  Serious: Yes (Death)
  Sender: FDA-Public Use
  Company Number: SK-ROCHE-1347291

PATIENT
  Age: 47 Year
  Sex: Male
  Weight: 115 kg

DRUGS (4)
  1. MABTHERA [Suspect]
     Indication: NON-HODGKIN^S LYMPHOMA
     Dosage: 700 MG 35ML/HOUR
     Route: 042
     Dates: start: 20140121, end: 20140121
  2. DITHIADEN [Concomitant]
     Dosage: BEFORA ADMINISTRATION OF MABTHERA
     Route: 042
     Dates: start: 20140121, end: 20140121
  3. PERFALGAN [Concomitant]
     Dosage: 1000 MG BEFORE ADMINISTRATION OF MABTHERA
     Route: 042
     Dates: start: 20140121, end: 20140121
  4. SOLU-MEDROL [Concomitant]
     Dosage: 40 MG BEFORE ADMINISTRATION OF MABTHERA
     Route: 042
     Dates: start: 20140121, end: 20140121

REACTIONS (5)
  - Chills [Fatal]
  - Hypotension [Fatal]
  - Mineral metabolism disorder [Fatal]
  - Hyperhidrosis [Fatal]
  - Hyperglycaemia [Fatal]
